FAERS Safety Report 4672878-8 (Version None)
Quarter: 2005Q2

REPORT INFORMATION
  Report Type: 
  Country: None (occurrence: None)
  Receive Date: 20050524
  Receipt Date: 20050510
  Transmission Date: 20051028
  Serious: Yes (Hospitalization, Other)
  Sender: FDA-Public Use
  Company Number: 05-05-0903

PATIENT
  Age: 17 Year
  Sex: Male
  Weight: 54 kg

DRUGS (2)
  1. FLUOXETINE [Suspect]
     Indication: DEPRESSION
     Dosage: 20MG 1XDAY ORAL
     Route: 048
     Dates: start: 20041110, end: 20050301
  2. VENLAFAXINE HCL [Suspect]
     Indication: DEPRESSION
     Dosage: 37.5BD-75MGX2 ORAL
     Route: 048
     Dates: start: 20050301

REACTIONS (2)
  - DRUG INTERACTION [None]
  - GRAND MAL CONVULSION [None]
